FAERS Safety Report 6145596-7 (Version None)
Quarter: 2009Q2

REPORT INFORMATION
  Report Type: 
  Country: None (occurrence: None)
  Receive Date: 20090407
  Receipt Date: 20090403
  Transmission Date: 20091009
  Serious: Yes (Death)
  Sender: FDA-Public Use
  Company Number: PHEH2009US03353

PATIENT
  Sex: Female
  Weight: 63.039 kg

DRUGS (10)
  1. TEKTURNA [Suspect]
     Indication: HYPERTENSION
     Dosage: 300 MG, UNK
     Dates: start: 20090306
  2. CARDURA                                 /IRE/ [Concomitant]
  3. ZYRTEC [Concomitant]
     Dosage: 10 MG, BID
  4. NYSTATIN [Concomitant]
  5. ISOSORBIDE [Concomitant]
     Dosage: 20 MG, TID
  6. CLONIDINE [Concomitant]
     Dosage: .02 MG, TID
  7. COREG [Concomitant]
     Dosage: 12.5 MG, BID
  8. ASPIRIN [Concomitant]
     Dosage: 81 MG, QD
  9. BUDESONIDE [Concomitant]
  10. COZAAR [Concomitant]

REACTIONS (1)
  - DEATH [None]
